FAERS Safety Report 4282144-0 (Version None)
Quarter: 2004Q1

REPORT INFORMATION
  Report Type: 
  Country: None (occurrence: None)
  Receive Date: 20040107
  Receipt Date: 20031125
  Transmission Date: 20041129
  Serious: Yes (Life-Threatening)
  Sender: FDA-Public Use
  Company Number: 229447

PATIENT
  Age: 59 Year
  Sex: Female
  Weight: 67.1 kg

DRUGS (6)
  1. NOVOLOG [Suspect]
     Indication: DIABETES MELLITUS INSULIN-DEPENDENT
     Dosage: SEE IMAGE
     Route: 058
     Dates: start: 20021101, end: 20030505
  2. NOVOLOG [Suspect]
     Indication: DIABETES MELLITUS INSULIN-DEPENDENT
     Dosage: SEE IMAGE
     Route: 058
     Dates: start: 20030505
  3. CLONIDINE [Concomitant]
  4. ZANADINE [Concomitant]
  5. PRINIVIL [Concomitant]
  6. MINIMED 508C INSULIN PUMP [Concomitant]

REACTIONS (1)
  - HYPOGLYCAEMIC COMA [None]
